FAERS Safety Report 8764183 (Version 2)
Quarter: 2012Q4

REPORT INFORMATION
  Report Type: 
  Country: JP (occurrence: JP)
  Receive Date: 20120831
  Receipt Date: 20121003
  Transmission Date: 20130627
  Serious: Yes (Other)
  Sender: FDA-Public Use
  Company Number: JP-B.I. PHARMACEUTICALS,INC./RIDGEFIELD-2012-BP-20858NB

PATIENT
  Age: 68 Year
  Sex: Female
  Weight: 48.8 kg

DRUGS (16)
  1. PRAZAXA [Suspect]
     Indication: ATRIAL FIBRILLATION
     Dosage: 220 mg
     Route: 048
     Dates: start: 20110415, end: 20120811
  2. PLETAAL [Suspect]
     Indication: CAROTID ARTERIAL EMBOLUS
     Dosage: 100 mg
     Route: 048
     Dates: start: 201203, end: 20120702
  3. TACROLIMUS [Suspect]
     Dosage: 2 mg
     Route: 065
  4. BAKTAR [Concomitant]
     Route: 065
  5. URINORM [Concomitant]
     Dosage: 50 mg
     Route: 065
  6. TAKEPRON [Concomitant]
     Dosage: 15 mg
     Route: 065
  7. MEDROL [Concomitant]
     Dosage: 4 mg
     Route: 065
  8. LASIX [Concomitant]
     Dosage: 10 mg
     Route: 065
  9. LIPITOR [Concomitant]
     Dosage: 10 mg
     Route: 065
  10. ATELEC [Concomitant]
     Dosage: 15 mg
     Route: 065
  11. CELLCEPT [Concomitant]
     Dosage: 750 mg
     Route: 065
  12. EPADEL S [Concomitant]
     Route: 065
  13. BLOPRESS [Concomitant]
     Dosage: 2 mg
     Route: 065
  14. CARDENALIN [Concomitant]
     Dosage: 8 mg
     Route: 065
  15. NOVORAPID 30 MIX [Concomitant]
     Route: 065
  16. HALFDIGOXIN [Concomitant]
     Route: 065

REACTIONS (5)
  - Carotid arterial embolus [Not Recovered/Not Resolved]
  - Right lower extremity haemorrhage subcutaneous [Recovered/Resolved]
  - Haemorrhage subcutaneous [Recovered/Resolved]
  - Drug ineffective [Unknown]
  - Drug interaction [Unknown]
